FAERS Safety Report 5005744-9 (Version None)
Quarter: 2006Q2

REPORT INFORMATION
  Report Type: 
  Country: None (occurrence: None)
  Receive Date: 20060517
  Receipt Date: 20060517
  Transmission Date: 20061013
  Serious: No
  Sender: FDA-Public Use
  Company Number: None

PATIENT
  Age: 13 Year
  Sex: Male

DRUGS (2)
  1. CLINDAMYCIN [Suspect]
     Indication: INFECTION
     Dosage: 600MG IV
     Route: 042
     Dates: start: 20060507, end: 20060508
  2. CLINDAMYCIN [Suspect]
     Indication: PERITONSILLAR ABSCESS
     Dosage: 600MG IV
     Route: 042
     Dates: start: 20060507, end: 20060508

REACTIONS (1)
  - PRURITUS [None]
